FAERS Safety Report 7785725-2 (Version None)
Quarter: 2011Q3

REPORT INFORMATION
  Report Type: 
  Country: None (occurrence: None)
  Receive Date: 20110929
  Receipt Date: 20110921
  Transmission Date: 20111222
  Serious: Yes (Hospitalization, Other)
  Sender: FDA-Public Use
  Company Number: US-ASTELLAS-2011US005250

PATIENT
  Sex: Male
  Weight: 86 kg

DRUGS (8)
  1. PROGRAF [Suspect]
     Indication: RENAL TRANSPLANT
     Dosage: 5 MG, Q12 HOURS
     Route: 048
     Dates: start: 20050504
  2. ASPIRIN [Concomitant]
     Indication: ANTICOAGULANT THERAPY
     Dosage: 81 MG, UID/QD
     Route: 048
     Dates: start: 20100901
  3. PERCOCET [Concomitant]
     Indication: PAIN
     Dosage: 5-325 Q12 HOURS PRN
     Route: 048
  4. K-PHOS ORIGINAL [Concomitant]
     Indication: RENAL TRANSPLANT
     Dosage: 250 MG, 3 X WEEKLY
     Route: 048
     Dates: start: 20050504
  5. MULTIVITAMINS, COMBINATIONS [Concomitant]
     Indication: PRODUCT USED FOR UNKNOWN INDICATION
     Dosage: UNK
     Route: 048
  6. BENADRYL [Concomitant]
     Indication: HYPERSENSITIVITY
     Dosage: 50 MG, Q6 HOURS PRN
     Route: 048
  7. DELTASONE [Concomitant]
     Indication: RENAL TRANSPLANT
     Dosage: 5 MG, UID/QD
     Route: 048
     Dates: start: 20050504
  8. VICODIN [Concomitant]
     Indication: MULTIPLE FRACTURES
     Dosage: UNK
     Route: 065

REACTIONS (21)
  - SUBCLAVIAN ARTERY THROMBOSIS [None]
  - ABDOMINAL PAIN [None]
  - MULTIPLE FRACTURES [None]
  - THROMBOSIS [None]
  - HYPERTHYROIDISM [None]
  - ANKLE FRACTURE [None]
  - CONVULSION [None]
  - UPPER RESPIRATORY TRACT INFECTION [None]
  - VASCULAR GRAFT [None]
  - VOMITING [None]
  - OSTEOPOROSIS [None]
  - DIARRHOEA [None]
  - MALAISE [None]
  - HYPERTENSION [None]
  - CHRONIC ALLOGRAFT NEPHROPATHY [None]
  - ROTATOR CUFF SYNDROME [None]
  - OSTEOARTHRITIS [None]
  - TREATMENT NONCOMPLIANCE [None]
  - CORONARY ARTERY DISEASE [None]
  - NAUSEA [None]
  - HEPATITIS [None]
